FAERS Safety Report 19890075 (Version 1)
Quarter: 2021Q3

REPORT INFORMATION
  Report Type: Spontaneous
  Country: US (occurrence: US)
  Receive Date: 20210927
  Receipt Date: 20210927
  Transmission Date: 20211014
  Serious: Yes (Other)
  Sender: FDA-Public Use
  Company Number: US-PFIZER INC-202101214363

PATIENT
  Age: 81 Year
  Sex: Female

DRUGS (1)
  1. XELJANZ XR [Suspect]
     Active Substance: TOFACITINIB CITRATE
     Indication: RHEUMATOID ARTHRITIS
     Dosage: 11 MG, 1X/DAY(ONCE A DAY)
     Route: 048
     Dates: start: 20210514

REACTIONS (4)
  - Arthralgia [Recovering/Resolving]
  - Psoriatic arthropathy [Recovering/Resolving]
  - Fatigue [Not Recovered/Not Resolved]
  - Myalgia [Recovering/Resolving]
